FAERS Safety Report 20813127 (Version 1)
Quarter: 2022Q2

REPORT INFORMATION
  Report Type: Spontaneous
  Country: US (occurrence: US)
  Receive Date: 20220511
  Receipt Date: 20220511
  Transmission Date: 20220720
  Serious: No
  Sender: FDA-Public Use
  Company Number: US-BRISTOL-MYERS SQUIBB COMPANY-2022-025095

PATIENT
  Age: 72 Year
  Sex: Male

DRUGS (2)
  1. REVLIMID [Suspect]
     Active Substance: LENALIDOMIDE
     Indication: Plasma cell myeloma
     Dosage: DOSE: 5 MILLIGRAM, FREQ: TAKE 1 CAPSULE BY MOUTH DAILY ON DAYS 1-21 AND REPEAT EVERY 28 DAYS
     Route: 048
     Dates: start: 20200213
  2. REVLIMID [Suspect]
     Active Substance: LENALIDOMIDE
     Dosage: DOSE: 5 MILLIGRAM, FREQ: TAKE 1 CAPSULE BY MOUTH DAILY ON DAYS 1-21 AND REPEAT EVERY 28 DAYS
     Route: 048
     Dates: start: 20200328

REACTIONS (1)
  - Product dose omission issue [Unknown]
